FAERS Safety Report 7350188-8 (Version None)
Quarter: 2011Q1

REPORT INFORMATION
  Report Type: 
  Country: None (occurrence: None)
  Receive Date: 20110314
  Receipt Date: 20110217
  Transmission Date: 20110831
  Serious: Yes (Hospitalization)
  Sender: FDA-Public Use
  Company Number: B0704927A

PATIENT
  Sex: Male
  Weight: 88 kg

DRUGS (14)
  1. LIPANTHYL [Concomitant]
     Route: 048
  2. ATENOLOL [Concomitant]
     Route: 048
  3. ASAFLOW [Concomitant]
     Route: 048
  4. CIPRAMIL [Concomitant]
     Route: 048
  5. MARAVIROC [Suspect]
     Indication: HIV INFECTION
     Dates: end: 20080505
  6. CEDOCARD [Concomitant]
     Route: 048
  7. RITONAVIR [Concomitant]
     Route: 048
     Dates: start: 20091116
  8. MARAVIROC [Concomitant]
     Dates: start: 20080505
  9. EVENING PRIMROSE OIL [Concomitant]
     Route: 048
  10. PRAVASTATIN [Concomitant]
     Route: 048
     Dates: end: 20100322
  11. NIACINAMIDE [Concomitant]
     Route: 048
  12. DARUNAVIR [Concomitant]
     Route: 048
     Dates: start: 20091116
  13. EZETROL [Concomitant]
     Route: 048
  14. RALTEGRAVIR [Concomitant]
     Route: 048
     Dates: start: 20091116

REACTIONS (1)
  - MYOCARDIAL INFARCTION [None]
